FAERS Safety Report 6078027-6 (Version None)
Quarter: 2009Q1

REPORT INFORMATION
  Report Type: 
  Country: None (occurrence: None)
  Receive Date: 20090213
  Receipt Date: 20090204
  Transmission Date: 20090719
  Serious: Yes (Other)
  Sender: FDA-Public Use
  Company Number: TH-PFIZER INC-2009166197

PATIENT

DRUGS (5)
  1. SOLU-MEDROL [Suspect]
     Dosage: 40 MG, 2X/DAY
     Route: 042
     Dates: start: 20081108, end: 20081108
  2. SOLU-CORTEF [Suspect]
     Dosage: 100 MG, 3X/DAY
     Route: 042
     Dates: start: 20081126, end: 20081128
  3. ALL OTHER THERAPEUTIC PRODUCTS [Concomitant]
     Indication: BENIGN PROSTATIC HYPERPLASIA
  4. ALL OTHER THERAPEUTIC PRODUCTS [Concomitant]
     Indication: PARKINSON'S DISEASE
  5. ALL OTHER THERAPEUTIC PRODUCTS [Concomitant]
     Indication: THYROID DISORDER

REACTIONS (1)
  - RENAL FAILURE ACUTE [None]
